FAERS Safety Report 25374706 (Version 1)
Quarter: 2025Q2

REPORT INFORMATION
  Report Type: Spontaneous
  Country: US (occurrence: US)
  Receive Date: 20250529
  Receipt Date: 20250529
  Transmission Date: 20250717
  Serious: No
  Sender: Haleon PLC
  Company Number: US-HALEON-2244353

PATIENT
  Age: 12 Year
  Sex: Female

DRUGS (4)
  1. ACETAMINOPHEN [Suspect]
     Active Substance: ACETAMINOPHEN
     Indication: Vulvovaginal swelling
  2. ACETAMINOPHEN [Suspect]
     Active Substance: ACETAMINOPHEN
     Indication: Vulvovaginal pain
  3. IBUPROFEN [Suspect]
     Active Substance: IBUPROFEN
     Indication: Vulvovaginal swelling
  4. IBUPROFEN [Suspect]
     Active Substance: IBUPROFEN
     Indication: Vulvovaginal pain

REACTIONS (1)
  - Drug ineffective [Unknown]
